FAERS Safety Report 8966332 (Version 2)
Quarter: 2013Q1

REPORT INFORMATION
  Report Type: Spontaneous
  Country: US (occurrence: US)
  Receive Date: 20121217
  Receipt Date: 20130103
  Transmission Date: 20140127
  Serious: Yes (Hospitalization)
  Sender: FDA-Public Use
  Company Number: US-JNJFOC-20121203332

PATIENT
  Age: 27 Year
  Sex: Male
  Weight: 67.86 kg

DRUGS (5)
  1. PREZISTA [Suspect]
     Indication: HIV INFECTION
     Route: 048
     Dates: start: 20120615, end: 20121109
  2. TRUVADA [Concomitant]
     Indication: HIV INFECTION
     Route: 065
     Dates: start: 20120615
  3. NORVIR [Concomitant]
     Indication: HIV INFECTION
     Route: 065
     Dates: start: 20120615
  4. ZITHROMAX [Concomitant]
     Indication: PROPHYLAXIS
     Route: 065
     Dates: start: 20120615
  5. DAPSONE [Concomitant]
     Indication: PROPHYLAXIS
     Route: 065
     Dates: start: 20120615

REACTIONS (2)
  - Drug eruption [Recovering/Resolving]
  - Hospitalisation [Unknown]
